FAERS Safety Report 21673594 (Version 1)
Quarter: 2022Q4

REPORT INFORMATION
  Report Type: Spontaneous
  Country: US (occurrence: None)
  Receive Date: 20221201
  Receipt Date: 20221201
  Transmission Date: 20230112
  Serious: No
  Sender: FDA-Public Use
  Company Number: None

PATIENT
  Age: 52 Year
  Sex: Female
  Weight: 63.45 kg

DRUGS (4)
  1. GAMUNEX-C [Suspect]
     Active Substance: HUMAN IMMUNOGLOBULIN G
     Indication: Myasthenia gravis
     Route: 042
  2. GAMUNEX-C [Suspect]
     Active Substance: HUMAN IMMUNOGLOBULIN G
     Indication: Myasthenia gravis
     Route: 042
  3. Diphenhydramine 25MG ORAL [Concomitant]
  4. MAPAP 500MG ORAL [Concomitant]

REACTIONS (4)
  - Urticaria [None]
  - Infusion related reaction [None]
  - Rash [None]
  - Treatment noncompliance [None]

NARRATIVE: CASE EVENT DATE: 20221128
